FAERS Safety Report 18815844 (Version 1)
Quarter: 2021Q1

REPORT INFORMATION
  Report Type: Spontaneous
  Country: US (occurrence: US)
  Receive Date: 20210201
  Receipt Date: 20210201
  Transmission Date: 20210419
  Serious: Yes (Hospitalization)
  Sender: FDA-Public Use
  Company Number: None

PATIENT
  Age: 65 Year
  Sex: Female
  Weight: 51.3 kg

DRUGS (10)
  1. RENVELA [Concomitant]
     Active Substance: SEVELAMER CARBONATE
  2. RENAL TAB [Concomitant]
  3. OMEGA CO 3 [Concomitant]
  4. PROLIA [Suspect]
     Active Substance: DENOSUMAB
     Indication: OSTEOPOROSIS
     Dosage: ?          QUANTITY:1 INJECTION(S);OTHER FREQUENCY:EVERY 6 ONTHS;?
     Route: 058
     Dates: start: 20201124, end: 20201124
  5. SOYBEAN LECITHIN [Concomitant]
  6. CATAPLEX C [Concomitant]
  7. DUOZYME [Concomitant]
  8. ACYCLOVIR. [Concomitant]
     Active Substance: ACYCLOVIR
  9. BIOFLAVINOID [Concomitant]
  10. CATAPLEX B [Concomitant]

REACTIONS (3)
  - Vomiting [None]
  - Feeling abnormal [None]
  - Nausea [None]

NARRATIVE: CASE EVENT DATE: 20201222
